FAERS Safety Report 6516971-3 (Version None)
Quarter: 2009Q4

REPORT INFORMATION
  Report Type: 
  Country: None (occurrence: None)
  Receive Date: 20091223
  Receipt Date: 20091221
  Transmission Date: 20100525
  Serious: Yes (Hospitalization)
  Sender: FDA-Public Use
  Company Number: PHHO2006GB18348

PATIENT
  Sex: Male
  Weight: 67.5 kg

DRUGS (4)
  1. PLACEBO PLACEBO [Suspect]
     Dosage: LEVEL 1
     Route: 048
     Dates: start: 20030924
  2. PLACEBO PLACEBO [Suspect]
     Dosage: LEVEL 2
     Route: 048
  3. DIOVAN T30230+CAPS [Suspect]
     Indication: CARDIOVASCULAR DISORDER
     Dosage: LEVEL 1
     Route: 048
     Dates: start: 20030924, end: 20060419
  4. DIOVAN T30230+CAPS [Suspect]
     Dosage: NO TREATMENT
     Dates: start: 20060420

REACTIONS (1)
  - RENAL FAILURE CHRONIC [None]
